FAERS Safety Report 8594174-9 (Version None)
Quarter: 2012Q3

REPORT INFORMATION
  Report Type: 
  Country: None (occurrence: None)
  Receive Date: 20120814
  Receipt Date: 20120809
  Transmission Date: 20120928
  Serious: Yes (Hospitalization)
  Sender: FDA-Public Use
  Company Number: PHHO2012NL010287

PATIENT
  Sex: Male

DRUGS (12)
  1. ASPIRIN [Suspect]
     Dosage: UNK
  2. ANTICOAGULANTS [Concomitant]
  3. GLIMEPIRIDE [Concomitant]
     Dosage: 2 MG, UNK
     Dates: start: 20111104
  4. ANGIOTENSIN CONVERTING ENZYME BLOCKERS [Concomitant]
  5. ACENOCOUMAROL [Suspect]
  6. SAXAGLIPTIN [Concomitant]
     Indication: TYPE 2 DIABETES MELLITUS
     Dosage: UNK MG, UNK
     Dates: start: 20110105
  7. GLIMEPIRIDE [Concomitant]
     Indication: TYPE 2 DIABETES MELLITUS
     Dosage: 1 MG, UNK
     Dates: end: 20111103
  8. EZETIMIBE [Concomitant]
  9. DIURETICS [Concomitant]
  10. BETA BLOCKING AGENTS [Concomitant]
  11. METFORMIN HYDROCHLORIDE [Concomitant]
     Indication: TYPE 2 DIABETES MELLITUS
     Dosage: 2550 MG, UNK
     Dates: end: 20111103
  12. METFORMIN HYDROCHLORIDE [Concomitant]
     Dosage: 3000 MG, UNK
     Dates: start: 20111104

REACTIONS (1)
  - EYE HAEMORRHAGE [None]
